FAERS Safety Report 8449694-4 (Version None)
Quarter: 2012Q2

REPORT INFORMATION
  Report Type: 
  Country: None (occurrence: None)
  Receive Date: 20120601
  Receipt Date: 20120518
  Transmission Date: 20120825
  Serious: Yes (Other)
  Sender: FDA-Public Use
  Company Number: 2012031567

PATIENT
  Age: 54 Year
  Sex: Female
  Weight: 65.7716 kg

DRUGS (26)
  1. HIZENTRA [Suspect]
     Indication: HYPOGAMMAGLOBULINAEMIA
     Dosage: *8G 1X/WEEK, 4 GM 20 ML VIAL; 40 ML IN 3 SIRES OVER 1-2 HOURS, SUBCUTANEOUS
     Route: 058
     Dates: start: 20120229
  2. HIZENTRA [Suspect]
     Indication: HYPOGAMMAGLOBULINAEMIA
     Dosage: *8 G 1X/WEEK, 4 GM 20 ML VIAL SUBCUTANEOUS)
     Route: 058
     Dates: start: 20120516, end: 20120516
  3. LASIX [Concomitant]
  4. GBAPENTIN [Concomitant]
  5. VENLAFAXINE [Concomitant]
  6. LEVEMIR [Concomitant]
  7. EPIPEN [Concomitant]
  8. FLEXERIL [Concomitant]
  9. BYSTOLIC [Concomitant]
  10. HIZENTRA [Suspect]
     Indication: HYPOGAMMAGLOBULINAEMIA
     Dosage: (8 G 1X/WEEK, 4 GM 20 ML VIAL SUBCUTANEOUS)
     Route: 058
  11. HUMALOG [Concomitant]
  12. FAMCICLOVIR [Concomitant]
  13. LIPITOR [Concomitant]
  14. TRAMADOL HCL [Concomitant]
  15. VITAMIN D [Concomitant]
  16. ASPIRIN [Concomitant]
  17. OMEPRAZOLE [Concomitant]
  18. CLARITIN [Concomitant]
  19. AMLODIPINE BESYLATE [Concomitant]
  20. MULTIVITAMIN (ACCOMIN MULTIVITAMIN) [Concomitant]
  21. BACTRIM [Concomitant]
  22. MUCINEX (GUALIFENESIN) [Concomitant]
  23. XANAX [Concomitant]
  24. DIPHENHYDRAMINE HCL [Concomitant]
  25. BENICAR [Concomitant]
  26. LOSARTAN POTASSIUM [Concomitant]

REACTIONS (7)
  - HEADACHE [None]
  - DIARRHOEA [None]
  - HYPERTENSION [None]
  - BLOOD GLUCOSE DECREASED [None]
  - SINUSITIS [None]
  - VOMITING [None]
  - TACHYCARDIA [None]
